FAERS Safety Report 7349942-8 (Version None)
Quarter: 2011Q1

REPORT INFORMATION
  Report Type: 
  Country: None (occurrence: None)
  Receive Date: 20110309
  Receipt Date: 20110309
  Transmission Date: 20110831
  Serious: Yes (Other)
  Sender: FDA-Public Use
  Company Number: None

PATIENT
  Sex: Male
  Weight: 68.9467 kg

DRUGS (1)
  1. TAMSULOSIN HCL [Suspect]
     Indication: URINARY INCONTINENCE
     Dosage: 1 DAY PO
     Route: 048
     Dates: start: 20110301, end: 20110305

REACTIONS (3)
  - AGGRESSION [None]
  - DISORIENTATION [None]
  - SOMNAMBULISM [None]
